FAERS Safety Report 4821592-4 (Version None)
Quarter: 2005Q4

REPORT INFORMATION
  Report Type: 
  Country: None (occurrence: None)
  Receive Date: 20051107
  Receipt Date: 20051103
  Transmission Date: 20060501
  Serious: Yes (Other)
  Sender: FDA-Public Use
  Company Number: US-GLAXOSMITHKLINE-A0580727A

PATIENT
  Sex: Female

DRUGS (1)
  1. OS-CAL 500+D TABLETS [Suspect]
     Indication: DRUG USE FOR UNKNOWN INDICATION
     Route: 048

REACTIONS (2)
  - CHOKING [None]
  - PHARMACEUTICAL PRODUCT COMPLAINT [None]
